FAERS Safety Report 4297315-7 (Version None)
Quarter: 2004Q1

REPORT INFORMATION
  Report Type: 
  Country: None (occurrence: None)
  Receive Date: 20040212
  Receipt Date: 20030916
  Transmission Date: 20041129
  Serious: Yes (Other)
  Sender: FDA-Public Use
  Company Number: A03200301007

PATIENT
  Age: 75 Year
  Sex: Female
  Weight: 71.2147 kg

DRUGS (5)
  1. AMBIEN [Suspect]
     Indication: ARTHRALGIA
     Dosage: 10 MG HS - ORAL
     Route: 048
     Dates: start: 20021201
  2. AMBIEN [Suspect]
     Indication: INSOMNIA
     Dosage: 10 MG HS - ORAL
     Route: 048
     Dates: start: 20021201
  3. VERAPAMIL [Concomitant]
  4. DOXAZOSIN MESYLATE [Concomitant]
  5. BISOPROLOL FUMARATE AND HYDROCHLOROTHIAZIDE [Concomitant]

REACTIONS (8)
  - ANXIETY [None]
  - DEPRESSION [None]
  - DIZZINESS [None]
  - FEELING ABNORMAL [None]
  - HEADACHE [None]
  - HEARING IMPAIRED [None]
  - HYPERTENSION [None]
  - NAUSEA [None]
